FAERS Safety Report 8457853-X (Version None)
Quarter: 2012Q2

REPORT INFORMATION
  Report Type: 
  Country: None (occurrence: None)
  Receive Date: 20120622
  Receipt Date: 20120611
  Transmission Date: 20120825
  Serious: Yes (Other)
  Sender: FDA-Public Use
  Company Number: CN-ACCORD-013752

PATIENT
  Age: 13 Year
  Sex: Female

DRUGS (1)
  1. TOPIRAMATE [Suspect]

REACTIONS (2)
  - RENAL TUBULAR ACIDOSIS [None]
  - HALLUCINATION [None]
